FAERS Safety Report 7393774-1 (Version None)
Quarter: 2011Q1

REPORT INFORMATION
  Report Type: 
  Country: None (occurrence: None)
  Receive Date: 20110330
  Receipt Date: 20110330
  Transmission Date: 20110831
  Serious: No
  Sender: FDA-Public Use
  Company Number: None

PATIENT
  Age: 21 Year
  Sex: Male
  Weight: 81.8 kg

DRUGS (1)
  1. ABILIFY DISCMELT 15 MG  DAILY PO OTSUKA AMERICA [Suspect]
     Indication: SCHIZOAFFECTIVE DISORDER
     Dosage: 15 MG DAILY PO
     Route: 048
     Dates: start: 20110303, end: 20110310

REACTIONS (1)
  - ANURIA [None]
